FAERS Safety Report 14949506 (Version 1)
Quarter: 2018Q2

REPORT INFORMATION
  Report Type: Spontaneous
  Country: US (occurrence: US)
  Receive Date: 20180508
  Receipt Date: 20180508
  Transmission Date: 20180711
  Serious: Yes (Other)
  Sender: FDA-Public Use
  Company Number: None

PATIENT
  Age: 47 Year
  Sex: Male
  Weight: 86.04 kg

DRUGS (3)
  1. LITHIUM. [Concomitant]
     Active Substance: LITHIUM
  2. LORAZEPAM. [Concomitant]
     Active Substance: LORAZEPAM
  3. STRATTERA [Suspect]
     Active Substance: ATOMOXETINE HYDROCHLORIDE
     Indication: ATTENTION DEFICIT/HYPERACTIVITY DISORDER
     Route: 048
     Dates: start: 20171011, end: 20171204

REACTIONS (5)
  - Product substitution issue [None]
  - Condition aggravated [None]
  - Drug ineffective [None]
  - Abdominal discomfort [None]
  - Anger [None]

NARRATIVE: CASE EVENT DATE: 20171204
